FAERS Safety Report 9320614 (Version 3)
Quarter: 2013Q3

REPORT INFORMATION
  Report Type: Spontaneous
  Country: US (occurrence: US)
  Receive Date: 20130531
  Receipt Date: 20130705
  Transmission Date: 20140515
  Serious: Yes (Hospitalization)
  Sender: FDA-Public Use
  Company Number: US-009507513-1305USA014892

PATIENT
  Age: 55 Year
  Sex: Female
  Weight: 72.56 kg

DRUGS (20)
  1. VICTRELIS [Suspect]
     Dosage: 800 MG, TID
     Route: 048
     Dates: start: 20130426
  2. REBETOL [Suspect]
     Route: 048
  3. PEGASYS [Suspect]
  4. TRAZODONE HYDROCHLORIDE [Concomitant]
     Route: 048
  5. SPIRIVA [Concomitant]
     Route: 048
  6. PROAIR (ALBUTEROL SULFATE) [Concomitant]
  7. VICODIN [Concomitant]
     Route: 048
  8. MAGNESIA [MILK OF] [Concomitant]
  9. MUCINEX D [Concomitant]
     Dosage: 120-1200
     Route: 048
  10. VITAMIN B COMPLEX [Concomitant]
  11. VITAMIN B COMPLEX [Concomitant]
  12. CALCIUM (UNSPECIFIED) (+) VITAMIN D (UNSPECIFIED) [Concomitant]
     Dosage: STOOL SOFTEN CAP 100-30
     Route: 048
  13. ASCORBIC ACID [Concomitant]
     Route: 048
  14. SYMBICORT [Concomitant]
     Dosage: AER 80-4.5
  15. PREDNISONE [Concomitant]
     Route: 048
  16. SERTRALINE HYDROCHLORIDE [Concomitant]
     Route: 048
  17. PROCHLORPERAZINE [Concomitant]
     Route: 048
  18. ALEVE [Concomitant]
     Route: 048
  19. EXCEDRIN (ACETAMINOPHEN (+) CAFFEINE) [Concomitant]
     Route: 048
  20. MELATONIN [Concomitant]

REACTIONS (8)
  - Dyspnoea [Unknown]
  - Cardiovascular disorder [Unknown]
  - Blood count abnormal [Unknown]
  - Anaemia [Unknown]
  - Fatigue [Unknown]
  - Headache [Unknown]
  - Nausea [Unknown]
  - Pyrexia [Unknown]
